FAERS Safety Report 4932470-4 (Version None)
Quarter: 2006Q1

REPORT INFORMATION
  Report Type: 
  Country: None (occurrence: None)
  Receive Date: 20060227
  Receipt Date: 20060217
  Transmission Date: 20060701
  Serious: Yes (Life-Threatening, Hospitalization)
  Sender: FDA-Public Use
  Company Number: 2006-00081FE

PATIENT
  Age: 56 Year
  Sex: Female

DRUGS (4)
  1. MINIRIN (MINIRIN ^FERRING^) (DESMOPRESSIN ACETATE) [Suspect]
     Indication: DIABETES INSIPIDUS
     Dosage: 1 UNK, IN
     Route: 055
     Dates: start: 19850101
  2. GENOTROPIN [Suspect]
     Dosage: 0.7 MG;
     Dates: start: 19980101
  3. HYDROCORTISONE [Suspect]
     Indication: HYPOPITUITARISM
     Dosage: 15 MG; PO
     Route: 048
     Dates: start: 19850101
  4. LEVOTHYROXINE SODIUM [Concomitant]

REACTIONS (3)
  - ADRENOCORTICAL INSUFFICIENCY ACUTE [None]
  - HYPONATRAEMIA [None]
  - INFECTION [None]
